APPROVED DRUG PRODUCT: TADALAFIL
Active Ingredient: TADALAFIL
Strength: 5MG
Dosage Form/Route: TABLET;ORAL
Application: A208824 | Product #002 | TE Code: AB1
Applicant: HANGZHOU MINSHENG BINJIANG PHARMACEUTICAL CO LTD
Approved: Oct 27, 2020 | RLD: No | RS: No | Type: RX